FAERS Safety Report 6530895-7 (Version None)
Quarter: 2010Q1

REPORT INFORMATION
  Report Type: 
  Country: None (occurrence: None)
  Receive Date: 20100108
  Receipt Date: 20090514
  Transmission Date: 20100710
  Serious: No
  Sender: FDA-Public Use
  Company Number: A0784608A

PATIENT

DRUGS (3)
  1. LOVAZA [Suspect]
     Route: 048
  2. FENOFIBRATE [Suspect]
     Indication: DRUG USE FOR UNKNOWN INDICATION
     Route: 065
  3. UNKNOWN [Concomitant]

REACTIONS (1)
  - DRUG INEFFECTIVE [None]
